FAERS Safety Report 13175958 (Version 4)
Quarter: 2017Q3

REPORT INFORMATION
  Report Type: Report from Study
  Country: US (occurrence: US)
  Receive Date: 20170201
  Receipt Date: 20170830
  Transmission Date: 20171127
  Serious: Yes (Hospitalization)
  Sender: FDA-Public Use
  Company Number: US-BIOGEN-2016BI00328760

PATIENT
  Age: 42 Year
  Sex: Female

DRUGS (1)
  1. TYSABRI [Suspect]
     Active Substance: NATALIZUMAB
     Indication: MULTIPLE SCLEROSIS
     Dosage: INFUSED OVER 1 HOUR
     Route: 042
     Dates: start: 20161201, end: 20170801

REACTIONS (13)
  - Hemiplegia [Not Recovered/Not Resolved]
  - Weight increased [Unknown]
  - Poor venous access [Not Recovered/Not Resolved]
  - Anaemia [Unknown]
  - Migraine [Recovered/Resolved]
  - Fluid overload [Recovered/Resolved]
  - Stress [Unknown]
  - Cardiac failure congestive [Recovered/Resolved]
  - Pulmonary oedema [Not Recovered/Not Resolved]
  - Multiple sclerosis relapse [Recovered/Resolved]
  - Transient ischaemic attack [Not Recovered/Not Resolved]
  - Device occlusion [Recovered/Resolved]
  - Gastroenteritis viral [Recovered/Resolved]

NARRATIVE: CASE EVENT DATE: 2016
